FAERS Safety Report 19191503 (Version 1)
Quarter: 2021Q2

REPORT INFORMATION
  Report Type: Spontaneous
  Country: SI (occurrence: SI)
  Receive Date: 20210428
  Receipt Date: 20210428
  Transmission Date: 20210717
  Serious: Yes (Other)
  Sender: FDA-Public Use
  Company Number: SI-BAUSCH-BL-2021-013996

PATIENT
  Age: 66 Year
  Sex: Female

DRUGS (8)
  1. CISOF [Suspect]
     Active Substance: FOSFOMYCIN TROMETHAMINE
     Route: 065
     Dates: start: 202006, end: 202103
  2. PANCEF [CEFUROXIME SODIUM] [Suspect]
     Active Substance: CEFUROXIME SODIUM
     Indication: URINARY TRACT INFECTION
     Route: 065
     Dates: start: 202006, end: 202103
  3. AMOKSIKLAV [Suspect]
     Active Substance: AMOXICILLIN\CLAVULANATE POTASSIUM
     Indication: URINARY TRACT INFECTION
     Route: 065
     Dates: start: 202006, end: 202103
  4. TWYNSTA [Concomitant]
     Active Substance: AMLODIPINE BESYLATE\TELMISARTAN
     Indication: HYPERTENSION
     Dosage: UNK (40/5)
     Route: 065
  5. CISOF [Suspect]
     Active Substance: FOSFOMYCIN TROMETHAMINE
     Indication: URINARY TRACT INFECTION
     Dosage: 3 MG (FOR 5 DAYS)
     Route: 065
     Dates: start: 202102, end: 202102
  6. INVANZ [Suspect]
     Active Substance: ERTAPENEM SODIUM
     Indication: URINARY TRACT INFECTION
     Route: 065
     Dates: start: 20210212, end: 20210222
  7. CIPRINOL [Suspect]
     Active Substance: CIPROFLOXACIN
     Indication: URINARY TRACT INFECTION
     Dosage: UNK (500/12H FOR 7 DAYS)
     Route: 065
     Dates: start: 202006, end: 202103
  8. GENTAMICINE [Suspect]
     Active Substance: GENTAMICIN
     Indication: URINARY TRACT INFECTION
     Route: 065
     Dates: start: 202006, end: 202103

REACTIONS (2)
  - Enterococcal infection [Unknown]
  - Drug ineffective [Unknown]
